FAERS Safety Report 15220933 (Version 1)
Quarter: 2018Q4

REPORT INFORMATION
  Report Type: Spontaneous
  Country: DE (occurrence: DE)
  Receive Date: 20180731
  Receipt Date: 20180731
  Transmission Date: 20190204
  Serious: Yes (Other)
  Sender: FDA-Public Use
  Company Number: DE-TEVA-2018-DE-933706

PATIENT
  Sex: Female

DRUGS (1)
  1. VALSARTAN-RATIOPHARM 160 MG/25 MG [Suspect]
     Active Substance: VALSARTAN
     Dosage: 1 DF CONTAINS 160 MG VALSARTAN AND 25 MG HYDROCHLOROTHIAZIDE
     Route: 048

REACTIONS (1)
  - Breast cancer female [Unknown]

NARRATIVE: CASE EVENT DATE: 201701
